FAERS Safety Report 5162911-1 (Version None)
Quarter: 2006Q4

REPORT INFORMATION
  Report Type: 
  Country: None (occurrence: None)
  Receive Date: 20061201
  Receipt Date: 20060920
  Transmission Date: 20070319
  Serious: Yes (Hospitalization)
  Sender: FDA-Public Use
  Company Number: JP-MERCK-0609USA05713

PATIENT
  Age: 80 Year
  Sex: Female
  Weight: 50 kg

DRUGS (11)
  1. FOSAMAX [Suspect]
     Indication: OSTEOPOROSIS
     Route: 048
     Dates: start: 20060616, end: 20060906
  2. GLAKAY [Suspect]
     Indication: OSTEOPOROSIS
     Route: 048
     Dates: start: 20060614, end: 20060906
  3. PARIET [Concomitant]
     Indication: REFLUX OESOPHAGITIS
     Route: 048
     Dates: start: 20040910
  4. CLARITHROMYCIN [Concomitant]
     Indication: BRONCHITIS
     Route: 048
     Dates: start: 20040910
  5. DIOVAN [Concomitant]
     Indication: HYPERTENSION
     Route: 048
     Dates: start: 20020911
  6. NORVASC [Concomitant]
     Indication: HYPERTENSION
     Route: 048
     Dates: start: 20010101
  7. CYTOTEC [Concomitant]
     Indication: GASTRIC ULCER
     Route: 048
     Dates: start: 20030326
  8. MARZULENE-S [Concomitant]
     Indication: GASTRIC ULCER
     Route: 048
     Dates: start: 20010101
  9. MUCOSTA [Concomitant]
     Indication: GASTRIC ULCER
     Route: 048
     Dates: start: 20010901
  10. AZULFIDINE EN-TABS [Concomitant]
     Indication: RHEUMATOID ARTHRITIS
     Route: 048
     Dates: start: 20010101
  11. NAPROXEN [Concomitant]
     Indication: RHEUMATOID ARTHRITIS
     Route: 048
     Dates: start: 19980101

REACTIONS (4)
  - HERPES ZOSTER [None]
  - HYPERAMYLASAEMIA [None]
  - NAUSEA [None]
  - ORAL DISCOMFORT [None]
